FAERS Safety Report 8273786-6 (Version None)
Quarter: 2012Q2

REPORT INFORMATION
  Report Type: 
  Country: None (occurrence: None)
  Receive Date: 20120411
  Receipt Date: 20120403
  Transmission Date: 20120825
  Serious: Yes (Hospitalization, Other)
  Sender: FDA-Public Use
  Company Number: US-CELGENEUS-163-21880-12031539

PATIENT
  Sex: Male

DRUGS (11)
  1. PROCHLORPERAZINE MALEATE [Concomitant]
     Route: 065
  2. HYDROCODONE BITARTRATE AND ACETAMINOPHEN [Concomitant]
     Route: 065
  3. HYDROCHLOROTHIAZIDE [Concomitant]
     Route: 065
  4. REVLIMID [Suspect]
     Dosage: 10 MILLIGRAM
     Route: 048
     Dates: start: 20120224
  5. VELCADE [Suspect]
     Route: 065
  6. DECADRON [Suspect]
     Route: 065
  7. ALPRAZOLAM [Concomitant]
     Route: 065
  8. REVLIMID [Suspect]
     Dosage: 10 MILLIGRAM
     Route: 048
     Dates: start: 20120203, end: 20120218
  9. LEVOTHROID [Concomitant]
     Route: 065
  10. VITAMIN B COMPLEX CAP [Concomitant]
     Route: 065
  11. ONDANSETRON HCL [Concomitant]
     Route: 065

REACTIONS (5)
  - IMMUNOSUPPRESSION [None]
  - SYNCOPE [None]
  - SEPSIS [None]
  - INFLUENZA [None]
  - HYPOTENSION [None]
